FAERS Safety Report 7920490-7 (Version None)
Quarter: 2011Q4

REPORT INFORMATION
  Report Type: 
  Country: None (occurrence: None)
  Receive Date: 20111117
  Receipt Date: 20111109
  Transmission Date: 20120403
  Serious: Yes (Other)
  Sender: FDA-Public Use
  Company Number: PHEH2009US08867

PATIENT
  Sex: Male
  Weight: 95.692 kg

DRUGS (11)
  1. AREDIA [Suspect]
     Indication: BONE LOSS
  2. AMBIEN [Concomitant]
  3. CELEXA [Concomitant]
  4. ZOMETA [Suspect]
     Indication: OSTEOPOROSIS
  5. ZOMETA [Suspect]
     Indication: BONE LOSS
  6. VELCADE [Concomitant]
  7. AREDIA [Suspect]
     Indication: OSTEOPOROSIS
  8. ASPIRIN [Concomitant]
  9. PLAVIX [Concomitant]
  10. DECADRON [Concomitant]
  11. NEXIUM [Concomitant]

REACTIONS (40)
  - PNEUMONIA [None]
  - FATIGUE [None]
  - DILATATION ATRIAL [None]
  - OSTEONECROSIS OF JAW [None]
  - PLEURAL EFFUSION [None]
  - ATELECTASIS [None]
  - CYST RUPTURE [None]
  - SINUSITIS [None]
  - OSTEOMYELITIS [None]
  - ARTERIOSCLEROSIS CORONARY ARTERY [None]
  - DYSPNOEA [None]
  - CELLULITIS [None]
  - SKIN ULCER [None]
  - DERMATITIS [None]
  - SINUS HEADACHE [None]
  - MYOCARDIAL INFARCTION [None]
  - CARDIAC DISORDER [None]
  - MULTIPLE MYELOMA [None]
  - RENAL CYST [None]
  - HYPOGAMMAGLOBULINAEMIA [None]
  - CORONARY ARTERY DISEASE [None]
  - BACK PAIN [None]
  - BRONCHITIS [None]
  - VISION BLURRED [None]
  - BLOOD CHOLESTEROL INCREASED [None]
  - INCREASED TENDENCY TO BRUISE [None]
  - OROPHARYNGEAL PAIN [None]
  - MITRAL VALVE CALCIFICATION [None]
  - AORTIC ARTERIOSCLEROSIS [None]
  - INJURY [None]
  - PAIN [None]
  - COMPRESSION FRACTURE [None]
  - OSTEOPENIA [None]
  - DEPRESSION [None]
  - IMMUNODEFICIENCY [None]
  - LYMPHADENITIS [None]
  - DILATATION VENTRICULAR [None]
  - ANXIETY [None]
  - DISABILITY [None]
  - NECK MASS [None]
